FAERS Safety Report 7244102-3 (Version None)
Quarter: 2011Q1

REPORT INFORMATION
  Report Type: 
  Country: None (occurrence: None)
  Receive Date: 20110119
  Receipt Date: 20110119
  Transmission Date: 20110831
  Serious: No
  Sender: FDA-Public Use
  Company Number: None

PATIENT

DRUGS (1)
  1. HALOPERIDOL [Suspect]

REACTIONS (3)
  - PSYCHOTIC DISORDER [None]
  - HALLUCINATION, VISUAL [None]
  - DELUSION [None]
